FAERS Safety Report 4393750-7 (Version None)
Quarter: 2004Q3

REPORT INFORMATION
  Report Type: 
  Country: None (occurrence: None)
  Receive Date: 20040709
  Receipt Date: 20040705
  Transmission Date: 20050211
  Serious: Yes (Hospitalization)
  Sender: FDA-Public Use
  Company Number: JP-GLAXOSMITHKLINE-B0338067A

PATIENT
  Age: 50 Year
  Sex: Male
  Weight: 37 kg

DRUGS (14)
  1. FLOLAN [Suspect]
     Indication: PULMONARY HYPERTENSION
     Route: 042
     Dates: start: 19990506
  2. DOBUTAMINE HCL [Suspect]
     Route: 042
  3. DOPAMINE HCL [Suspect]
     Route: 042
  4. SPIRONOLACTONE [Suspect]
     Route: 048
  5. WARFARIN POTASSIUM [Concomitant]
     Route: 048
  6. FUROSEMIDE [Concomitant]
     Route: 048
  7. DIGOXIN [Concomitant]
     Route: 048
  8. PURSENNID [Concomitant]
     Route: 048
  9. URINORM [Concomitant]
     Route: 048
  10. HALCION [Concomitant]
     Route: 048
  11. MAGNESIUM OXIDE [Concomitant]
     Route: 048
  12. NIFEKALANT HYDROCHLORIDE [Concomitant]
     Route: 042
  13. BEPRIDIL HYDROCHLORIDE [Concomitant]
     Route: 048
  14. PIMOBENDAN [Concomitant]
     Route: 048

REACTIONS (7)
  - ABDOMINAL DISTENSION [None]
  - ANAEMIA [None]
  - ASCITES [None]
  - HAEMOPTYSIS [None]
  - HEPATIC CONGESTION [None]
  - PULMONARY HAEMORRHAGE [None]
  - WEIGHT DECREASED [None]
